FAERS Safety Report 7510844-5 (Version None)
Quarter: 2011Q2

REPORT INFORMATION
  Report Type: 
  Country: None (occurrence: None)
  Receive Date: 20110531
  Receipt Date: 20110519
  Transmission Date: 20111010
  Serious: No
  Sender: FDA-Public Use
  Company Number: US-BIOGENIDEC-2011BI018962

PATIENT
  Age: 51 Year
  Sex: Male

DRUGS (1)
  1. TYSABRI [Suspect]
     Indication: MULTIPLE SCLEROSIS
     Route: 042
     Dates: start: 20090101

REACTIONS (6)
  - THROAT IRRITATION [None]
  - PARAESTHESIA [None]
  - DYSPHAGIA [None]
  - MUSCLE TIGHTNESS [None]
  - FATIGUE [None]
  - OROPHARYNGEAL PAIN [None]
